FAERS Safety Report 16570066 (Version 1)
Quarter: 2019Q3

REPORT INFORMATION
  Report Type: Spontaneous
  Country: US (occurrence: US)
  Receive Date: 20190715
  Receipt Date: 20190715
  Transmission Date: 20191004
  Serious: No
  Sender: FDA-Public Use
  Company Number: US-BRISTOL-MYERS SQUIBB COMPANY-BMS-2019-060428

PATIENT
  Sex: Female

DRUGS (1)
  1. KENALOG-10 [Suspect]
     Active Substance: TRIAMCINOLONE ACETONIDE
     Indication: HYPERSENSITIVITY
     Dosage: UNK
     Route: 065
     Dates: start: 2019

REACTIONS (2)
  - Intentional product use issue [Unknown]
  - Maternal exposure before pregnancy [Unknown]
